FAERS Safety Report 23584621 (Version 1)
Quarter: 2024Q1

REPORT INFORMATION
  Report Type: Spontaneous
  Country: US (occurrence: US)
  Receive Date: 20240301
  Receipt Date: 20240301
  Transmission Date: 20240409
  Serious: No
  Sender: FDA-Public Use
  Company Number: US-AUROBINDO-AUR-APL-2023-079004

PATIENT
  Sex: Female

DRUGS (1)
  1. DORZOLAMIDE HYDROCHLORIDE\TIMOLOL MALEATE [Suspect]
     Active Substance: DORZOLAMIDE HYDROCHLORIDE\TIMOLOL MALEATE
     Indication: Glaucoma
     Dosage: UNK, FOUR TIMES/DAY, (IN MORNING AND NIGHT)
     Route: 065

REACTIONS (4)
  - Eye irritation [Unknown]
  - Ocular hyperaemia [Unknown]
  - Oropharyngeal discomfort [Unknown]
  - Vision blurred [Unknown]
